FAERS Safety Report 24898993 (Version 2)
Quarter: 2025Q1

REPORT INFORMATION
  Report Type: Spontaneous
  Country: GB (occurrence: GB)
  Receive Date: 20250129
  Receipt Date: 20250320
  Transmission Date: 20250409
  Serious: Yes (Hospitalization)
  Sender: MYLAN
  Company Number: GB-MYLANLABS-2025M1006819

PATIENT
  Sex: Female

DRUGS (8)
  1. CLOZARIL [Suspect]
     Active Substance: CLOZAPINE
     Indication: Schizophrenia
     Dates: start: 20220207, end: 20250115
  2. CLOZARIL [Suspect]
     Active Substance: CLOZAPINE
     Dates: start: 20220207, end: 20250115
  3. CLOZARIL [Suspect]
     Active Substance: CLOZAPINE
     Route: 048
     Dates: start: 20220207, end: 20250115
  4. CLOZARIL [Suspect]
     Active Substance: CLOZAPINE
     Route: 048
     Dates: start: 20220207, end: 20250115
  5. CLOZARIL [Suspect]
     Active Substance: CLOZAPINE
  6. CLOZARIL [Suspect]
     Active Substance: CLOZAPINE
  7. CLOZARIL [Suspect]
     Active Substance: CLOZAPINE
     Route: 065
  8. CLOZARIL [Suspect]
     Active Substance: CLOZAPINE
     Route: 065

REACTIONS (2)
  - Mental impairment [Unknown]
  - Treatment noncompliance [Unknown]
